FAERS Safety Report 5409241-8 (Version None)
Quarter: 2007Q3

REPORT INFORMATION
  Report Type: 
  Country: None (occurrence: None)
  Receive Date: 20070809
  Receipt Date: 20070731
  Transmission Date: 20080115
  Serious: Yes (Other)
  Sender: FDA-Public Use
  Company Number: PHHO2007BR09175

PATIENT
  Age: 60 Year
  Sex: Male
  Weight: 90 kg

DRUGS (9)
  1. DIOVAN AMLO [Suspect]
     Indication: HYPERTENSION
     Route: 048
     Dates: start: 20070201
  2. GLIMEPIRIDE [Concomitant]
     Indication: DIABETES MELLITUS
  3. LESCOL XL [Concomitant]
     Indication: BLOOD CHOLESTEROL
  4. PURAN T4 [Concomitant]
     Indication: HYPOTHYROIDISM
  5. FUROSEMIDE [Concomitant]
     Indication: HYPERTENSION
  6. METFORMIN HCL [Concomitant]
     Indication: BLOOD CHOLESTEROL
  7. DIOVAN [Suspect]
     Dosage: 80MG
     Route: 048
     Dates: start: 20030101
  8. DIOVAN [Suspect]
     Dosage: 160MG
     Route: 048
  9. DIOVAN [Suspect]
     Dosage: 160MG
     Route: 048

REACTIONS (2)
  - ARRHYTHMIA [None]
  - BLOOD PRESSURE DECREASED [None]
